FAERS Safety Report 14274900 (Version 2)
Quarter: 2017Q4

REPORT INFORMATION
  Report Type: Spontaneous
  Country: US (occurrence: US)
  Receive Date: 20171212
  Receipt Date: 20171213
  Transmission Date: 20180321
  Serious: Yes (Hospitalization, Other)
  Sender: FDA-Public Use
  Company Number: US-GLAXOSMITHKLINE-US2017GSK189774

PATIENT
  Sex: Male

DRUGS (3)
  1. REVATIO [Concomitant]
     Active Substance: SILDENAFIL CITRATE
  2. FLOLAN [Suspect]
     Active Substance: EPOPROSTENOL SODIUM
     Indication: PULMONARY HYPERTENSION
     Dosage: 11 NG/KG/MIN CONTINUOUS
     Route: 042
     Dates: start: 20170911
  3. FLOLAN [Suspect]
     Active Substance: EPOPROSTENOL SODIUM
     Indication: PULMONARY HYPERTENSION
     Dosage: UNK
     Route: 042
     Dates: start: 20170911

REACTIONS (5)
  - Weight decreased [Unknown]
  - Gastrointestinal tube insertion [Unknown]
  - Central venous catheterisation [Unknown]
  - Gastrostomy [Unknown]
  - Decreased appetite [Unknown]
